FAERS Safety Report 7383569-7 (Version None)
Quarter: 2011Q1

REPORT INFORMATION
  Report Type: 
  Country: None (occurrence: None)
  Receive Date: 20110330
  Receipt Date: 20110325
  Transmission Date: 20110831
  Serious: Yes (Hospitalization)
  Sender: FDA-Public Use
  Company Number: GB-PFIZER INC-2008079548

PATIENT
  Age: 41 Year
  Sex: Male
  Weight: 55 kg

DRUGS (5)
  1. VORICONAZOLE [Suspect]
     Indication: GASTROINTESTINAL CANDIDIASIS
     Dosage: 200 MG, 2X/DAY
     Route: 048
     Dates: start: 20040820, end: 20040915
  2. OMEPRAZOLE [Interacting]
     Indication: DYSPEPSIA
     Dosage: 40 MG, 2X/DAY
     Route: 048
     Dates: start: 20040815
  3. ITRACONAZOLE [Concomitant]
  4. DOMPERIDONE [Concomitant]
     Indication: NAUSEA
     Dosage: UNK
     Dates: start: 20040815
  5. AMPHOTERICIN B [Concomitant]

REACTIONS (9)
  - PATHOGEN RESISTANCE [None]
  - PERICARDIAL EFFUSION [None]
  - VENTRICULAR FAILURE [None]
  - NEUTROPENIA [None]
  - BLOOD ALKALINE PHOSPHATASE INCREASED [None]
  - DRUG LEVEL INCREASED [None]
  - COLLAPSE OF LUNG [None]
  - DRUG INTERACTION [None]
  - SUPRAVENTRICULAR TACHYCARDIA [None]
